FAERS Safety Report 8290722-7 (Version None)
Quarter: 2012Q2

REPORT INFORMATION
  Report Type: 
  Country: None (occurrence: None)
  Receive Date: 20120417
  Receipt Date: 20110225
  Transmission Date: 20120825
  Serious: No
  Sender: FDA-Public Use
  Company Number: US-ASTRAZENECA-2011SE10932

PATIENT
  Age: 45 Year
  Sex: Female

DRUGS (5)
  1. QUINAPRIL [Concomitant]
  2. NEXIUM [Suspect]
     Route: 048
  3. NORVASC [Concomitant]
  4. TRAZODONE HCL [Concomitant]
  5. CELEXA [Concomitant]

REACTIONS (4)
  - ADVERSE EVENT [None]
  - INSOMNIA [None]
  - DRUG DOSE OMISSION [None]
  - APHAGIA [None]
